FAERS Safety Report 21395779 (Version 1)
Quarter: 2022Q3

REPORT INFORMATION
  Report Type: Spontaneous
  Country: US (occurrence: None)
  Receive Date: 20220929
  Receipt Date: 20220929
  Transmission Date: 20221027
  Serious: No
  Sender: FDA-Public Use
  Company Number: None

PATIENT
  Age: 27 Year
  Sex: Female
  Weight: 126.45 kg

DRUGS (2)
  1. SANDOSTATIN LAR DEPOT [Suspect]
     Active Substance: OCTREOTIDE ACETATE
     Indication: Hypoglycaemia
     Dosage: OTHER FREQUENCY : ONCE MONTHLY;?
     Route: 030
     Dates: end: 20220920
  2. PROPRANOLOL [Concomitant]
     Active Substance: PROPRANOLOL HYDROCHLORIDE
     Dates: start: 20220310

REACTIONS (15)
  - Cerebrovascular accident [None]
  - Heart rate increased [None]
  - Chest discomfort [None]
  - Muscle tightness [None]
  - Hypoaesthesia [None]
  - Confusional state [None]
  - Headache [None]
  - Visual impairment [None]
  - Gait disturbance [None]
  - Dysphagia [None]
  - Dystonia [None]
  - Paralysis [None]
  - Adverse drug reaction [None]
  - Migraine [None]
  - Drug interaction [None]

NARRATIVE: CASE EVENT DATE: 20220920
